FAERS Safety Report 14171082 (Version 1)
Quarter: 2017Q4

REPORT INFORMATION
  Report Type: Spontaneous
  Country: US (occurrence: US)
  Receive Date: 20171108
  Receipt Date: 20171108
  Transmission Date: 20180321
  Serious: Yes (Other)
  Sender: FDA-Public Use
  Company Number: US-GLAXOSMITHKLINE-US2017169172

PATIENT

DRUGS (1)
  1. EXCEDRIN TENSION HEADACHE [Suspect]
     Active Substance: ACETAMINOPHEN\CAFFEINE
     Indication: HEADACHE
     Dosage: TAKING IT EVERY DAY

REACTIONS (3)
  - Liver injury [Unknown]
  - Hospitalisation [Unknown]
  - Overdose [Unknown]
